FAERS Safety Report 5260329-4 (Version None)
Quarter: 2007Q1

REPORT INFORMATION
  Report Type: 
  Country: None (occurrence: None)
  Receive Date: 20070309
  Receipt Date: 20060714
  Transmission Date: 20070707
  Serious: No
  Sender: FDA-Public Use
  Company Number: US-GLAXOSMITHKLINE-A0612145A

PATIENT
  Age: 69 Year
  Sex: Male

DRUGS (1)
  1. NICORETTE (MINT) [Suspect]

REACTIONS (2)
  - INTENTIONAL DRUG MISUSE [None]
  - MOUTH PLAQUE [None]
